FAERS Safety Report 8431801-0 (Version None)
Quarter: 2012Q2

REPORT INFORMATION
  Report Type: 
  Country: None (occurrence: None)
  Receive Date: 20120607
  Receipt Date: 20120607
  Transmission Date: 20120825
  Serious: Yes (Hospitalization)
  Sender: FDA-Public Use
  Company Number: None

PATIENT
  Sex: Male
  Weight: 63.6 kg

DRUGS (2)
  1. CISPLATIN [Suspect]
     Dates: end: 20120514
  2. TAXOL [Suspect]
     Dates: end: 20120514

REACTIONS (4)
  - FALL [None]
  - HEAD INJURY [None]
  - ASCITES [None]
  - SYNCOPE [None]
